FAERS Safety Report 21614934 (Version 16)
Quarter: 2024Q2

REPORT INFORMATION
  Report Type: Report from Study
  Country: CN (occurrence: CN)
  Receive Date: 20221118
  Receipt Date: 20240606
  Transmission Date: 20240716
  Serious: Yes (Other)
  Sender: FDA-Public Use
  Company Number: CN-FOSUNKITE-FOSUNKITE-20220581

PATIENT
  Age: 63 Year
  Sex: Male

DRUGS (6)
  1. AXICABTAGENE CILOLEUCEL [Suspect]
     Active Substance: AXICABTAGENE CILOLEUCEL
     Indication: Non-Hodgkin^s lymphoma
     Dosage: 1.5?10^6/KG (NUMBER OF CAR-T CELLS)
     Route: 042
     Dates: start: 20221020, end: 20221020
  2. CYCLOPHOSPHAMIDE [Suspect]
     Active Substance: CYCLOPHOSPHAMIDE
     Indication: Lymphodepletion
     Dosage: 530 MG
     Route: 041
     Dates: start: 20221015, end: 20221017
  3. FLUDARABINE PHOSPHATE [Suspect]
     Active Substance: FLUDARABINE PHOSPHATE
     Indication: Lymphodepletion
     Dosage: 50 MG
     Route: 041
     Dates: start: 20221015, end: 20221017
  4. OBINUTUZUMAB [Concomitant]
     Active Substance: OBINUTUZUMAB
     Indication: Non-Hodgkin^s lymphoma
     Dosage: 1000 MG FOR 2 TREATMENT PERIODS
     Route: 042
     Dates: start: 20220908, end: 20220909
  5. OBINUTUZUMAB [Concomitant]
     Active Substance: OBINUTUZUMAB
     Dosage: 3150 MG, TREATMENT CYCLE 2
     Dates: start: 20220908, end: 20220925
  6. METHOTREXATE [Concomitant]
     Active Substance: METHOTREXATE
     Indication: Non-Hodgkin^s lymphoma
     Dosage: UNK36 ML FOR 2 TREATMENT PERIODS
     Route: 042
     Dates: start: 20220910, end: 20220911

REACTIONS (21)
  - Pneumonia [Recovered/Resolved]
  - Hypokalaemia [Recovered/Resolved]
  - Hypogammaglobulinaemia [Not Recovered/Not Resolved]
  - Lymphocyte count decreased [Not Recovered/Not Resolved]
  - White blood cell count decreased [Not Recovered/Not Resolved]
  - Platelet count decreased [Recovered/Resolved]
  - Anaemia [Recovering/Resolving]
  - C-reactive protein increased [Recovered/Resolved]
  - Hypocalcaemia [Recovered/Resolved]
  - Hyponatraemia [Recovered/Resolved]
  - Cytokine increased [Not Recovered/Not Resolved]
  - Serum ferritin increased [Recovered/Resolved]
  - Headache [Recovered/Resolved]
  - Chest discomfort [Recovered/Resolved]
  - Blood fibrinogen decreased [Not Recovered/Not Resolved]
  - Oral infection [Recovered/Resolved]
  - Diarrhoea [Recovered/Resolved]
  - Nausea [Not Recovered/Not Resolved]
  - Asthenia [Not Recovered/Not Resolved]
  - Dysphoria [Recovered/Resolved]
  - Neutrophil count decreased [Recovered/Resolved]

NARRATIVE: CASE EVENT DATE: 20221020
